FAERS Safety Report 25250152 (Version 3)
Quarter: 2025Q2

REPORT INFORMATION
  Report Type: Spontaneous
  Country: US (occurrence: US)
  Receive Date: 20250429
  Receipt Date: 20250623
  Transmission Date: 20250716
  Serious: Yes (Other)
  Sender: BLUEPRINT MEDICINES
  Company Number: US-Blueprint Medicines Corporation-2025-AER-00843

PATIENT
  Age: 77 Year
  Sex: Male

DRUGS (1)
  1. AYVAKIT [Suspect]
     Active Substance: AVAPRITINIB
     Indication: Haematopoietic neoplasm
     Route: 065
     Dates: start: 20250308

REACTIONS (12)
  - Bladder catheterisation [Unknown]
  - Hallucination [Unknown]
  - Abdominal discomfort [Unknown]
  - Bedridden [Unknown]
  - Dyspepsia [Unknown]
  - Weight increased [Unknown]
  - Arthropathy [Unknown]
  - Blood potassium abnormal [Unknown]
  - Nausea [Unknown]
  - Ageusia [Unknown]
  - Insomnia [Unknown]
  - Blood pressure abnormal [Unknown]
